FAERS Safety Report 24567366 (Version 4)
Quarter: 2025Q3

REPORT INFORMATION
  Report Type: Report from Study
  Country: US (occurrence: US)
  Receive Date: 20241030
  Receipt Date: 20250925
  Transmission Date: 20251021
  Serious: No
  Sender: SUNOVION
  Company Number: US-SMPA-2024SPA004415AA

PATIENT
  Age: 69 Year
  Sex: Male

DRUGS (2)
  1. ORGOVYX [Suspect]
     Active Substance: RELUGOLIX
     Indication: Prostate cancer
     Route: 048
     Dates: start: 20241019, end: 20241019
  2. ORGOVYX [Suspect]
     Active Substance: RELUGOLIX
     Dosage: 120 MG, QD
     Route: 048
     Dates: start: 20241020

REACTIONS (8)
  - Surgery [Unknown]
  - Sleep apnoea syndrome [Unknown]
  - Unevaluable event [Unknown]
  - Appetite disorder [Unknown]
  - Decreased appetite [Unknown]
  - Depression [Unknown]
  - Hot flush [Unknown]
  - Therapy interrupted [Recovered/Resolved]
